FAERS Safety Report 7788274-0 (Version None)
Quarter: 2011Q3

REPORT INFORMATION
  Report Type: 
  Country: None (occurrence: None)
  Receive Date: 20110930
  Receipt Date: 20110926
  Transmission Date: 20111222
  Serious: Yes (Death)
  Sender: FDA-Public Use
  Company Number: FR-JNJFOC-20110910189

PATIENT
  Age: 61 Year
  Sex: Male

DRUGS (3)
  1. ESIDRIX [Concomitant]
     Route: 065
  2. RISPERDAL CONSTA [Suspect]
     Indication: SCHIZOPHRENIA
     Route: 030
  3. LAXATIVE (NOS) [Concomitant]
     Route: 065

REACTIONS (1)
  - CARDIAC ARREST [None]
